FAERS Safety Report 9543450 (Version 2)
Quarter: 2013Q3

REPORT INFORMATION
  Report Type: Report from Study
  Country: US (occurrence: US)
  Receive Date: 20130923
  Receipt Date: 20130923
  Transmission Date: 20140515
  Serious: Yes (Death, Hospitalization, Other)
  Sender: FDA-Public Use
  Company Number: US-ACTELION-A-US2013-88332

PATIENT
  Age: 51 Year
  Sex: Female

DRUGS (5)
  1. TRACLEER [Suspect]
     Indication: PULMONARY ARTERIAL HYPERTENSION
     Dosage: UNK
     Route: 048
  2. VENTAVIS [Suspect]
     Indication: PULMONARY ARTERIAL HYPERTENSION
     Dosage: UNK
     Route: 055
  3. FLOLAN [Concomitant]
  4. SILDENAFIL [Concomitant]
  5. COUMADIN [Concomitant]

REACTIONS (7)
  - Respiratory failure [Fatal]
  - Cardiac failure congestive [Fatal]
  - Pulmonary arterial hypertension [Fatal]
  - Right ventricular failure [Unknown]
  - Atrial fibrillation [Unknown]
  - Swelling [Fatal]
  - Oxygen saturation abnormal [Fatal]
